FAERS Safety Report 6653286-7 (Version None)
Quarter: 2010Q1

REPORT INFORMATION
  Report Type: 
  Country: None (occurrence: None)
  Receive Date: 20100326
  Receipt Date: 20100317
  Transmission Date: 20100710
  Serious: Yes (Hospitalization)
  Sender: FDA-Public Use
  Company Number: FR-SANOFI-AVENTIS-2010SA015433

PATIENT
  Age: 58 Year
  Sex: Male

DRUGS (4)
  1. OFLOCET [Suspect]
     Indication: DRUG USE FOR UNKNOWN INDICATION
     Route: 042
  2. CLAFORAN [Suspect]
     Indication: DRUG USE FOR UNKNOWN INDICATION
     Route: 042
  3. HUMAN FIBRINOGEN+HUMAN THROMBIN [Suspect]
     Indication: DRUG USE FOR UNKNOWN INDICATION
     Dates: start: 20091230, end: 20091230
  4. ALL OTHER THERAPEUTIC PRODUCTS [Suspect]
     Indication: DRUG USE FOR UNKNOWN INDICATION
     Dates: start: 20091230, end: 20091230

REACTIONS (2)
  - ANTI FACTOR VII ANTIBODY POSITIVE [None]
  - PROTHROMBIN TIME PROLONGED [None]
